FAERS Safety Report 10305086 (Version 1)
Quarter: 2014Q3

REPORT INFORMATION
  Report Type: Spontaneous
  Country: US (occurrence: None)
  Receive Date: 20140711
  Receipt Date: 20140711
  Transmission Date: 20150326
  Serious: Yes (Other)
  Sender: FDA-Public Use
  Company Number: None

PATIENT
  Age: 65 Year
  Sex: Female

DRUGS (13)
  1. LEXISCAN [Suspect]
     Active Substance: REGADENOSON
     Indication: CARDIAC STRESS TEST
  2. CALCIUM SUPPLEMENTS [Concomitant]
     Active Substance: CALCIUM
  3. GABAPENTIN. [Concomitant]
     Active Substance: GABAPENTIN
  4. VIT. D [Concomitant]
  5. PROBIOTIC [Concomitant]
     Active Substance: PROBIOTICS NOS
  6. FIBER [Concomitant]
     Active Substance: PSYLLIUM HUSK
  7. DIOVAN [Concomitant]
     Active Substance: VALSARTAN
  8. OXYCODONE [Concomitant]
     Active Substance: OXYCODONE
  9. ASPIRIN. [Concomitant]
     Active Substance: ASPIRIN
  10. FUROSEMIDE. [Concomitant]
     Active Substance: FUROSEMIDE
  11. ADVAIR HFA [Concomitant]
     Active Substance: FLUTICASONE PROPIONATE\SALMETEROL XINAFOATE
  12. AMINOPHYLLINE 125 MG [Suspect]
     Active Substance: AMINOPHYLLINE
  13. MIRALAX [Concomitant]
     Active Substance: POLYETHYLENE GLYCOL 3350

REACTIONS (6)
  - Hypoaesthesia [None]
  - Discomfort [None]
  - Chills [None]
  - Tremor [None]
  - Lung disorder [None]
  - Procedural complication [None]

NARRATIVE: CASE EVENT DATE: 20140625
